FAERS Safety Report 13930053 (Version 1)
Quarter: 2017Q3

REPORT INFORMATION
  Report Type: Spontaneous
  Country: RS (occurrence: RS)
  Receive Date: 20170901
  Receipt Date: 20170901
  Transmission Date: 20171127
  Serious: Yes (Death, Hospitalization)
  Sender: FDA-Public Use
  Company Number: RS-TEVA-800778ROM

PATIENT
  Age: 14 Year
  Sex: Female

DRUGS (5)
  1. MORPHINE [Suspect]
     Active Substance: MORPHINE
     Indication: ANTIBIOTIC THERAPY
     Route: 065
  2. AMPICILLIN [Suspect]
     Active Substance: AMPICILLIN
     Indication: ANTIBIOTIC THERAPY
     Route: 065
  3. AMIKACIN [Suspect]
     Active Substance: AMIKACIN
     Indication: ANTIBIOTIC THERAPY
     Route: 065
  4. RANITIDINE. [Suspect]
     Active Substance: RANITIDINE
     Route: 065
  5. METRONIDAZOLE. [Suspect]
     Active Substance: METRONIDAZOLE
     Indication: ANTIBIOTIC THERAPY
     Route: 065

REACTIONS (9)
  - Septic shock [Fatal]
  - Pleural effusion [Unknown]
  - Pseudomonas infection [Unknown]
  - Multiple organ dysfunction syndrome [Fatal]
  - Pneumonia [Unknown]
  - Toxic epidermal necrolysis [Unknown]
  - Respiratory acidosis [Unknown]
  - Rash [Recovered/Resolved]
  - Metabolic acidosis [Unknown]
